FAERS Safety Report 6081572-0 (Version None)
Quarter: 2009Q1

REPORT INFORMATION
  Report Type: 
  Country: None (occurrence: None)
  Receive Date: 20090218
  Receipt Date: 20090216
  Transmission Date: 20090719
  Serious: No
  Sender: FDA-Public Use
  Company Number: US-BAYER-200913324NA

PATIENT
  Age: 20 Year
  Sex: Female
  Weight: 57 kg

DRUGS (3)
  1. MIRENA [Suspect]
     Indication: CONTRACEPTION
     Route: 015
     Dates: start: 20071101
  2. VICODIN [Concomitant]
     Indication: ABDOMINAL PAIN LOWER
  3. ACETAMINOPHEN [Concomitant]
     Indication: ABDOMINAL PAIN LOWER

REACTIONS (5)
  - ABDOMINAL PAIN LOWER [None]
  - CYST [None]
  - DYSPAREUNIA [None]
  - MENORRHAGIA [None]
  - VULVOVAGINAL PAIN [None]
